FAERS Safety Report 4542565-5 (Version None)
Quarter: 2004Q4

REPORT INFORMATION
  Report Type: 
  Country: None (occurrence: None)
  Receive Date: 20041230
  Receipt Date: 20041222
  Transmission Date: 20050328
  Serious: Yes (Death, Hospitalization)
  Sender: FDA-Public Use
  Company Number: US-MERCK-0412USA02736

PATIENT
  Age: 86 Year
  Sex: Female

DRUGS (7)
  1. ZOCOR [Suspect]
     Indication: BLOOD CHOLESTEROL INCREASED
     Route: 048
     Dates: start: 20020901, end: 20040401
  2. VERAPAMIL [Concomitant]
     Route: 065
  3. LOPRESSOR [Concomitant]
     Route: 065
  4. ALTACE [Concomitant]
     Route: 065
  5. DIURETIC (UNSPECIFIED) [Concomitant]
     Route: 065
  6. ASPIRIN [Concomitant]
     Route: 065
  7. NEXIUM [Concomitant]
     Route: 065

REACTIONS (3)
  - DEATH [None]
  - MUSCLE DISORDER [None]
  - RENAL FAILURE [None]
